FAERS Safety Report 14424966 (Version 1)
Quarter: 2018Q1

REPORT INFORMATION
  Report Type: Spontaneous
  Country: CH (occurrence: CH)
  Receive Date: 20180123
  Receipt Date: 20180123
  Transmission Date: 20180509
  Serious: Yes (Hospitalization, Other)
  Sender: FDA-Public Use
  Company Number: CH-PFIZER INC-2018025061

PATIENT
  Age: 8 Year
  Sex: Female
  Weight: 25 kg

DRUGS (3)
  1. METHOTREXATE. [Concomitant]
     Active Substance: METHOTREXATE
     Indication: BONE SARCOMA
     Dosage: UNK
  2. CISPLATIN. [Concomitant]
     Active Substance: CISPLATIN
     Indication: BONE SARCOMA
     Dosage: UNK
  3. DOXORUBICIN HCL [Suspect]
     Active Substance: DOXORUBICIN HYDROCHLORIDE
     Indication: BONE SARCOMA
     Dosage: UNK (CUMULATIVE DOSES: 450 MG/M2)

REACTIONS (6)
  - Viral myocarditis [Recovered/Resolved]
  - Cardiomyopathy [Recovered/Resolved]
  - Muscle injury [Recovering/Resolving]
  - Cardiac failure congestive [Recovered/Resolved]
  - Fibrosis [Recovering/Resolving]
  - Human herpesvirus 6 infection [Recovered/Resolved]
